FAERS Safety Report 8933645 (Version 2)
Quarter: 2012Q4

REPORT INFORMATION
  Report Type: 
  Country: US (occurrence: US)
  Receive Date: 20121129
  Receipt Date: 20121213
  Transmission Date: 20130627
  Serious: Yes (Other)
  Sender: FDA-Public Use
  Company Number: US-FRI-1000040670

PATIENT
  Age: 49 Year
  Sex: Male
  Weight: 74 kg

DRUGS (4)
  1. BYSTOLIC [Suspect]
     Indication: HYPERTENSION
     Dosage: 5 mg
     Route: 048
     Dates: start: 20121105, end: 201211
  2. LIPITOR [Concomitant]
     Indication: DYSLIPIDAEMIA
     Dosage: 20 mg
     Route: 048
  3. ASPIRIN [Concomitant]
     Dosage: 650 mg
  4. LASIX [Concomitant]
     Indication: OEDEMA
     Dosage: 20 mg

REACTIONS (2)
  - Hypertension [Recovered/Resolved]
  - Heart rate decreased [Recovered/Resolved]
